FAERS Safety Report 7102991-7 (Version None)
Quarter: 2010Q4

REPORT INFORMATION
  Report Type: 
  Country: None (occurrence: None)
  Receive Date: 20101115
  Receipt Date: 20080313
  Transmission Date: 20110411
  Serious: No
  Sender: FDA-Public Use
  Company Number: US-KINGPHARMUSA00001-K200800329

PATIENT
  Age: 57 Year
  Sex: Female

DRUGS (1)
  1. TILADE [Suspect]
     Indication: ASTHMA
     Dosage: 3 PUFFS, TID
     Dates: start: 19910101

REACTIONS (1)
  - PEAK EXPIRATORY FLOW RATE DECREASED [None]
